FAERS Safety Report 4422067-7 (Version None)
Quarter: 2004Q3

REPORT INFORMATION
  Report Type: 
  Country: None (occurrence: None)
  Receive Date: 20040712
  Receipt Date: 20030618
  Transmission Date: 20050211
  Serious: Yes (Hospitalization)
  Sender: FDA-Public Use
  Company Number: TAP2003Q01496

PATIENT
  Age: 77 Year
  Sex: Female
  Weight: 90.7194 kg

DRUGS (6)
  1. PREVACID [Suspect]
     Indication: DYSPEPSIA
     Dosage: 30 MG, 1 IN 1 D, ORAL
     Route: 048
     Dates: start: 20030602
  2. TEGRETOL [Concomitant]
  3. DEPAKOATE (VALPROATE SEMISODIUM) [Concomitant]
  4. PHENOBARBITAL TAB [Concomitant]
  5. CENTRUM MULTIVITAMIN (CENTRUM) [Concomitant]
  6. MYLANTA (MYLANTA) [Concomitant]

REACTIONS (5)
  - CONDITION AGGRAVATED [None]
  - DEHYDRATION [None]
  - DYSPEPSIA [None]
  - DYSPNOEA EXACERBATED [None]
  - INFLAMMATION LOCALISED [None]
